FAERS Safety Report 9687666 (Version 1)
Quarter: 2013Q4

REPORT INFORMATION
  Report Type: Spontaneous
  Country: IN (occurrence: None)
  Receive Date: 20131112
  Receipt Date: 20131112
  Transmission Date: 20140711
  Serious: Yes (Hospitalization, Other)
  Sender: FDA-Public Use
  Company Number: IPC201310-000436

PATIENT
  Age: 24 Year
  Sex: Male

DRUGS (4)
  1. TRAMADOL (TRAMADOL) (TRAMADOL) [Suspect]
     Indication: FATIGUE
     Dosage: 2 TO 3 TABLETS TO 15-16 TABLETS DAILY
  2. PARACETAMOL (PARACETAMOL) (PARACETAMOL) [Suspect]
     Indication: FATIGUE
     Dosage: 375 MG INITIALLY STARTED W/2-3 TABLETS QD WHICH WAS INCREASED TO 5-6 TABLET QD AFTER ABOUT 6-8 MTHS.
  3. ALPRAZOLAM (ALPRAZOLAM) (ALPRAZOLAM) [Suspect]
     Indication: FEELING OF RELAXATION
     Dosage: INITIALLY STARTED W/1-2 MG QD TO RELAX AND 3-4MG QD TO PREVENT EPILEPTIC SEIZURES
  4. ALPRAZOLAM (ALPRAZOLAM) (ALPRAZOLAM) [Suspect]
     Indication: EPILEPSY
     Dosage: INITIALLY STARTED W/1-2 MG QD TO RELAX AND 3-4MG QD TO PREVENT EPILEPTIC SEIZURES

REACTIONS (8)
  - Drug dependence [None]
  - Drug abuse [None]
  - Headache [None]
  - Fatigue [None]
  - Epilepsy [None]
  - Drug withdrawal syndrome [None]
  - Premature ejaculation [None]
  - Overdose [None]
